FAERS Safety Report 4451124-4 (Version None)
Quarter: 2004Q3

REPORT INFORMATION
  Report Type: 
  Country: None (occurrence: None)
  Receive Date: 20040913
  Receipt Date: 20040722
  Transmission Date: 20050211
  Serious: No
  Sender: FDA-Public Use
  Company Number: 2004-BP-06038BP

PATIENT
  Age: 69 Year
  Sex: Female

DRUGS (8)
  1. SPIRIVA [Suspect]
     Indication: CHRONIC OBSTRUCTIVE AIRWAYS DISEASE
     Dosage: 18 MCG (18 MCG), IH
     Route: 055
     Dates: start: 20040701
  2. SPIRIVA [Suspect]
     Dosage: 18 MCG (18 MCG); IH
     Route: 055
  3. E-MYCIN (ERYTHROMYCIN) [Concomitant]
  4. ALBUTEROL [Concomitant]
  5. PREDNISONE [Concomitant]
  6. PULMICORT [Concomitant]
  7. FOSAMAX [Concomitant]
  8. EFFEXOR [Concomitant]

REACTIONS (1)
  - DYSPNOEA EXACERBATED [None]
